FAERS Safety Report 8586322 (Version 2)
Quarter: 2013Q1

REPORT INFORMATION
  Report Type: Spontaneous
  Country: US (occurrence: None)
  Receive Date: 20120523
  Receipt Date: 20121106
  Transmission Date: 20140127
  Serious: Yes (Hospitalization, Other)
  Sender: FDA-Public Use
  Company Number: 2012-2251

PATIENT
  Age: 4 Year
  Sex: Female
  Weight: 14.9 kg

DRUGS (3)
  1. INCRELEX [Suspect]
     Dosage: 32 UNITS (16 UNITS, 2 IN 1 D)
     Dates: start: 2009
  2. PEDIA-LAX BIBER GUMMIES (ALL OTHER THERAPEUTIC PRODUCTS) [Concomitant]
  3. PEDIA-LYTE (PEDIALYTE) [Concomitant]

REACTIONS (2)
  - TONSILLITIS [None]
  - HYPERHIDROSIS [None]
